FAERS Safety Report 5514634-4 (Version None)
Quarter: 2007Q4

REPORT INFORMATION
  Report Type: 
  Country: None (occurrence: None)
  Receive Date: 20071113
  Receipt Date: 20071107
  Transmission Date: 20080405
  Serious: Yes (Hospitalization)
  Sender: FDA-Public Use
  Company Number: FR-ASTRAZENECA-2007CG01582

PATIENT
  Age: 69 Year
  Sex: Male

DRUGS (5)
  1. CRESTOR [Suspect]
     Indication: DYSLIPIDAEMIA
     Route: 048
     Dates: start: 20070201, end: 20070215
  2. TAHOR [Suspect]
     Indication: DYSLIPIDAEMIA
     Dates: end: 20070101
  3. TAHOR [Suspect]
     Route: 048
     Dates: start: 20070216, end: 20070821
  4. KENZEN [Concomitant]
  5. KARDEGIC [Concomitant]

REACTIONS (1)
  - CUTANEOUS LUPUS ERYTHEMATOSUS [None]
